FAERS Safety Report 9753801 (Version 2)
Quarter: 2015Q3

REPORT INFORMATION
  Report Type: Spontaneous
  Country: US (occurrence: US)
  Receive Date: 20131213
  Receipt Date: 20150805
  Transmission Date: 20151125
  Serious: No
  Sender: FDA-Public Use
  Company Number: US-GILEAD-2010-0027018

PATIENT
  Age: 54 Year
  Sex: Female
  Weight: 56.25 kg

DRUGS (8)
  1. PRILOSEC [Concomitant]
     Active Substance: OMEPRAZOLE MAGNESIUM
  2. REGLAN [Concomitant]
     Active Substance: METOCLOPRAMIDE HYDROCHLORIDE
  3. STOOL SOFTENER [Concomitant]
     Active Substance: DOCUSATE CALCIUM
  4. COUMADIN [Concomitant]
     Active Substance: WARFARIN SODIUM
  5. NIFEDIPINE. [Concomitant]
     Active Substance: NIFEDIPINE
  6. ALEVE [Concomitant]
     Active Substance: NAPROXEN SODIUM
  7. LETAIRIS [Suspect]
     Active Substance: AMBRISENTAN
     Indication: PULMONARY ARTERIAL HYPERTENSION
     Route: 048
     Dates: start: 20091214
  8. ENALAPRIL [Concomitant]
     Active Substance: ENALAPRIL

REACTIONS (3)
  - Rash [Unknown]
  - Swelling face [Unknown]
  - Pharyngeal oedema [Unknown]
